FAERS Safety Report 23946845 (Version 1)
Quarter: 2024Q2

REPORT INFORMATION
  Report Type: Spontaneous
  Country: US (occurrence: None)
  Receive Date: 20240606
  Receipt Date: 20240606
  Transmission Date: 20240716
  Serious: Yes (Other)
  Sender: FDA-Public Use
  Company Number: None

PATIENT
  Age: 53 Year
  Sex: Female
  Weight: 112.5 kg

DRUGS (1)
  1. LOSARTAN [Suspect]
     Active Substance: LOSARTAN
     Indication: Blood pressure increased
     Dates: start: 20240605, end: 20240605

REACTIONS (6)
  - Back pain [None]
  - Arthralgia [None]
  - Arthralgia [None]
  - Confusional state [None]
  - Insomnia [None]
  - Discharge [None]

NARRATIVE: CASE EVENT DATE: 20240605
